FAERS Safety Report 8283511-0 (Version None)
Quarter: 2012Q2

REPORT INFORMATION
  Report Type: 
  Country: None (occurrence: None)
  Receive Date: 20120413
  Receipt Date: 20120412
  Transmission Date: 20120825
  Serious: Yes (Death, Other)
  Sender: FDA-Public Use
  Company Number: PHHY2012ES031002

PATIENT
  Age: 92 Year
  Sex: Male

DRUGS (4)
  1. LIORESAL [Suspect]
     Indication: TRIGEMINAL NEURALGIA
     Dosage: 10 MG, UNK
     Route: 048
     Dates: start: 20050101
  2. LORAZEPAM [Suspect]
     Dosage: 2 MG, UNK
     Route: 048
     Dates: start: 20111227
  3. METFORMIN HCL [Concomitant]
  4. GABAPENTIN [Suspect]

REACTIONS (3)
  - DEATH [None]
  - SOMNOLENCE [None]
  - CONFUSIONAL STATE [None]
